FAERS Safety Report 21603858 (Version 1)
Quarter: 2022Q4

REPORT INFORMATION
  Report Type: Spontaneous
  Country: US (occurrence: US)
  Receive Date: 20221116
  Receipt Date: 20221116
  Transmission Date: 20230113
  Serious: Yes (Life-Threatening, Other)
  Sender: FDA-Public Use
  Company Number: US-PFIZER INC-202201300041

PATIENT
  Age: 74 Year
  Sex: Female

DRUGS (2)
  1. PAXLOVID [Suspect]
     Active Substance: NIRMATRELVIR\RITONAVIR
     Indication: COVID-19 treatment
     Dosage: UNK
     Dates: start: 202209
  2. AMOXICILLIN [Suspect]
     Active Substance: AMOXICILLIN
     Indication: Sinusitis
     Dosage: 875 MG, 2X/DAY

REACTIONS (9)
  - Near death experience [Unknown]
  - Diarrhoea [Not Recovered/Not Resolved]
  - Decreased appetite [Unknown]
  - Dysgeusia [Unknown]
  - Malnutrition [Unknown]
  - Dehydration [Unknown]
  - Anal incontinence [Unknown]
  - Anxiety [Unknown]
  - Abdominal discomfort [Unknown]
